FAERS Safety Report 20699875 (Version 1)
Quarter: 2022Q2

REPORT INFORMATION
  Report Type: Spontaneous
  Country: US (occurrence: None)
  Receive Date: 20220411
  Receipt Date: 20220411
  Transmission Date: 20220721
  Serious: No
  Sender: FDA-Public Use
  Company Number: None

PATIENT
  Sex: Male

DRUGS (1)
  1. GAMMAGARD LIQUID [Suspect]
     Active Substance: HUMAN IMMUNOGLOBULIN G
     Indication: Osteoporosis
     Dosage: OTHER FREQUENCY : EVERY 3 WEEKS ;?
     Route: 042
     Dates: start: 20190823

REACTIONS (2)
  - Asthma [None]
  - Pneumonia aspiration [None]
